FAERS Safety Report 5136132-2 (Version None)
Quarter: 2006Q4

REPORT INFORMATION
  Report Type: 
  Country: None (occurrence: None)
  Receive Date: 20061027
  Receipt Date: 20060918
  Transmission Date: 20070319
  Serious: Yes (Hospitalization, Other)
  Sender: FDA-Public Use
  Company Number: US-BAYER-200615638BWH

PATIENT
  Age: 67 Year
  Sex: Male
  Weight: 103 kg

DRUGS (2)
  1. NEXAVAR [Suspect]
     Indication: RENAL CELL CARCINOMA STAGE UNSPECIFIED
     Route: 048
     Dates: start: 20060710
  2. NEURONTIN [Concomitant]
     Dosage: TOTAL DAILY DOSE: 300 G
     Route: 048

REACTIONS (1)
  - PANCYTOPENIA [None]
